FAERS Safety Report 9638953 (Version 1)
Quarter: 2013Q4

REPORT INFORMATION
  Report Type: Spontaneous
  Country: DK (occurrence: DE)
  Receive Date: 20131022
  Receipt Date: 20131022
  Transmission Date: 20140711
  Serious: Yes (Death, Hospitalization, Congenital Anomaly, Other)
  Sender: FDA-Public Use
  Company Number: DE-FRI-1000050361

PATIENT
  Age: 0 Day
  Sex: Male
  Weight: 3.6 kg

DRUGS (2)
  1. CITALOPRAM [Suspect]
     Indication: DEPRESSION
     Dosage: 10 MG
     Route: 064
     Dates: end: 20080927
  2. FOLIO [Concomitant]
     Indication: PROPHYLAXIS OF NEURAL TUBE DEFECT
     Dosage: 0.4 MG
     Route: 064

REACTIONS (10)
  - Holoprosencephaly [Fatal]
  - Congenital central nervous system anomaly [Not Recovered/Not Resolved]
  - Cleft lip and palate [Unknown]
  - Hypotelorism of orbit [Unknown]
  - Convulsion neonatal [Not Recovered/Not Resolved]
  - Temperature regulation disorder [Recovered/Resolved]
  - Hyperbilirubinaemia neonatal [Recovered/Resolved]
  - Congenital hydrocephalus [Unknown]
  - Feeding disorder neonatal [Unknown]
  - Foetal exposure during pregnancy [Fatal]
